FAERS Safety Report 7332347-3 (Version None)
Quarter: 2011Q1

REPORT INFORMATION
  Report Type: 
  Country: None (occurrence: None)
  Receive Date: 20110304
  Receipt Date: 20110302
  Transmission Date: 20110831
  Serious: Yes (Other)
  Sender: FDA-Public Use
  Company Number: A0911296A

PATIENT
  Age: 46 Year
  Sex: Female

DRUGS (2)
  1. TYKERB [Suspect]
     Indication: BREAST CANCER
     Dosage: 1250MG PER DAY
     Route: 048
     Dates: start: 20070801, end: 20100701
  2. CAPECITABINE [Suspect]
     Indication: BREAST CANCER
     Dosage: 2000MGM2 SEE DOSAGE TEXT
     Dates: start: 20070801, end: 20100701

REACTIONS (17)
  - PLEURAL FIBROSIS [None]
  - MUCOSAL INFLAMMATION [None]
  - PERFORMANCE STATUS DECREASED [None]
  - NEOPLASM MALIGNANT [None]
  - METASTASES TO LUNG [None]
  - NAUSEA [None]
  - COMPUTERISED TOMOGRAM [None]
  - NUCLEAR MAGNETIC RESONANCE IMAGING [None]
  - METASTASES TO CENTRAL NERVOUS SYSTEM [None]
  - SPEECH DISORDER [None]
  - RADIOTHERAPY [None]
  - METASTATIC NEOPLASM [None]
  - CONFUSIONAL STATE [None]
  - SKIN TOXICITY [None]
  - DISEASE PROGRESSION [None]
  - LUNG DISORDER [None]
  - BREAST CANCER METASTATIC [None]
